FAERS Safety Report 5672357-5 (Version None)
Quarter: 2008Q1

REPORT INFORMATION
  Report Type: 
  Country: None (occurrence: None)
  Receive Date: 20080317
  Receipt Date: 20001109
  Transmission Date: 20080703
  Serious: Yes (Other)
  Sender: FDA-Public Use
  Company Number: US022284

PATIENT
  Age: 27 Year
  Sex: Female
  Weight: 104.3273 kg

DRUGS (2)
  1. PROVIGIL [Suspect]
     Indication: NARCOLEPSY
     Dosage: 200 MG QD ORAL
     Route: 048
     Dates: start: 19990301, end: 20000222
  2. NORTRIPTYLINE HCL [Concomitant]

REACTIONS (5)
  - COMPLICATION OF DELIVERY [None]
  - DRUG EXPOSURE BEFORE PREGNANCY [None]
  - DRUG EXPOSURE DURING PREGNANCY [None]
  - PRE-ECLAMPSIA [None]
  - PREGNANCY [None]
